FAERS Safety Report 13096857 (Version 1)
Quarter: 2017Q1

REPORT INFORMATION
  Report Type: Spontaneous
  Country: US (occurrence: US)
  Receive Date: 20170106
  Receipt Date: 20170106
  Transmission Date: 20170428
  Serious: Yes (Disabling, Other)
  Sender: FDA-Public Use
  Company Number: None

PATIENT
  Age: 57 Year
  Sex: Female
  Weight: 81 kg

DRUGS (1)
  1. REFRESH P.M. [Suspect]
     Active Substance: MINERAL OIL\PETROLATUM
     Indication: DRY EYE
     Route: 047
     Dates: start: 20151001, end: 20151110

REACTIONS (5)
  - Drug hypersensitivity [None]
  - Dry eye [None]
  - Eye inflammation [None]
  - Loss of employment [None]
  - Eye disorder [None]

NARRATIVE: CASE EVENT DATE: 20151001
